FAERS Safety Report 5409053-5 (Version None)
Quarter: 2007Q3

REPORT INFORMATION
  Report Type: 
  Country: None (occurrence: None)
  Receive Date: 20070808
  Receipt Date: 20070731
  Transmission Date: 20080115
  Serious: Yes (Other)
  Sender: FDA-Public Use
  Company Number: NZ-ABBOTT-07P-118-0374876-00

PATIENT
  Sex: Female

DRUGS (5)
  1. REDUCTIL [Suspect]
     Indication: DRUG USE FOR UNKNOWN INDICATION
  2. NORTRIPTYLINE HCL [Interacting]
     Indication: DRUG USE FOR UNKNOWN INDICATION
     Route: 048
     Dates: end: 20070717
  3. OXYBUTYNIN CHLORIDE [Interacting]
     Indication: DRUG USE FOR UNKNOWN INDICATION
     Route: 048
  4. OXYBUTYNIN CHLORIDE [Interacting]
     Route: 048
  5. SIMVASTATIN [Concomitant]
     Indication: DRUG USE FOR UNKNOWN INDICATION

REACTIONS (6)
  - DRUG INTERACTION [None]
  - FEELING JITTERY [None]
  - HIP SURGERY [None]
  - MALAISE [None]
  - NAUSEA [None]
  - PALPITATIONS [None]
